FAERS Safety Report 10375551 (Version 1)
Quarter: 2014Q1

REPORT INFORMATION
  Report Type: Spontaneous
  Country: US (occurrence: None)
  Receive Date: 20140306
  Receipt Date: 20140306
  Transmission Date: 20141002
  Serious: Yes (Hospitalization)
  Sender: FDA-Public Use
  Company Number: 163-21880-13010663

PATIENT
  Age: 73 Year
  Sex: Female

DRUGS (6)
  1. REVLIMID [Suspect]
     Indication: PLASMA CELL MYELOMA
     Route: 048
     Dates: start: 20090625
  2. ACYCLOVIR (ACICLOVIR) (ACICLOVIR) [Concomitant]
  3. DEXAMETHASONE [Concomitant]
  4. TYLENOL (PARACETAMOL) [Concomitant]
  5. VELCADE (BORTEZOMIB) [Concomitant]
  6. XALATAN (LATANOPROST) [Concomitant]

REACTIONS (1)
  - Pneumonia [None]
